FAERS Safety Report 18769633 (Version 1)
Quarter: 2021Q1

REPORT INFORMATION
  Report Type: Spontaneous
  Country: NZ (occurrence: NZ)
  Receive Date: 20210121
  Receipt Date: 20210121
  Transmission Date: 20210419
  Serious: Yes (Other)
  Sender: FDA-Public Use
  Company Number: NZ-PFIZER INC-2021025749

PATIENT
  Age: 52 Year
  Sex: Female

DRUGS (2)
  1. ZOLEDRONIC ACID [Suspect]
     Active Substance: ZOLEDRONIC ACID
     Indication: BREAST CANCER METASTATIC
     Dosage: 4 MG
     Route: 042
  2. ZOLEDRONIC ACID [Suspect]
     Active Substance: ZOLEDRONIC ACID
     Dosage: UNK (SECOND INFUSION OF ZOLEDRONATE WAS ADMINISTERED 12 MONTHS AFTER THE FIRST)

REACTIONS (3)
  - Product prescribing error [Unknown]
  - Hypophosphataemic osteomalacia [Recovered/Resolved]
  - Condition aggravated [Recovered/Resolved]
